FAERS Safety Report 8270037-3 (Version None)
Quarter: 2012Q2

REPORT INFORMATION
  Report Type: 
  Country: None (occurrence: None)
  Receive Date: 20120410
  Receipt Date: 20120403
  Transmission Date: 20120825
  Serious: Yes (Other)
  Sender: FDA-Public Use
  Company Number: SK-UCBSA-054656

PATIENT
  Sex: Female

DRUGS (4)
  1. MEDROL [Concomitant]
  2. FLECTOR [Concomitant]
  3. CIMZIA [Suspect]
     Route: 058
     Dates: start: 20110217
  4. LEVOTHYROXINE SODIUM [Concomitant]

REACTIONS (1)
  - HERPES ZOSTER [None]
